FAERS Safety Report 9934124 (Version 1)
Quarter: 2014Q1

REPORT INFORMATION
  Report Type: Report from Study
  Country: US (occurrence: US)
  Receive Date: 20140228
  Receipt Date: 20140228
  Transmission Date: 20141002
  Serious: No
  Sender: FDA-Public Use
  Company Number: US-ABBVIE-13P-163-1097382-00

PATIENT
  Sex: Male
  Weight: 109.87 kg

DRUGS (2)
  1. ANDROGEL [Suspect]
     Indication: BLOOD TESTOSTERONE DECREASED
     Dosage: 2 PUMPS
     Dates: start: 2011, end: 2013
  2. ANDROGEL STICK PACK 1.25G [Suspect]
     Indication: BLOOD TESTOSTERONE DECREASED
     Dates: start: 2013

REACTIONS (2)
  - Lymphadenopathy [Not Recovered/Not Resolved]
  - Hair disorder [Unknown]
